FAERS Safety Report 6031927-5 (Version None)
Quarter: 2009Q1

REPORT INFORMATION
  Report Type: 
  Country: None (occurrence: None)
  Receive Date: 20090107
  Receipt Date: 20081222
  Transmission Date: 20090719
  Serious: Yes (Life-Threatening)
  Sender: FDA-Public Use
  Company Number: 8040768

PATIENT
  Age: 68 Year
  Sex: Female

DRUGS (3)
  1. KEPPRA [Suspect]
     Indication: COMPLEX PARTIAL SEIZURES
     Dosage: 500 MG /D PO
     Route: 048
     Dates: start: 20081030, end: 20081128
  2. GARDENALE /00023202/ [Suspect]
     Indication: COMPLEX PARTIAL SEIZURES
     Dosage: 100 MG /D PO
     Route: 048
     Dates: start: 20081030, end: 20081128
  3. SOLDESAM /00016002/ [Concomitant]

REACTIONS (2)
  - STEVENS-JOHNSON SYNDROME [None]
  - TOXIC EPIDERMAL NECROLYSIS [None]
